FAERS Safety Report 10884011 (Version 2)
Quarter: 2015Q3

REPORT INFORMATION
  Report Type: Spontaneous
  Country: IT (occurrence: IT)
  Receive Date: 20150304
  Receipt Date: 20150904
  Transmission Date: 20151125
  Serious: Yes (Hospitalization)
  Sender: FDA-Public Use
  Company Number: IT-ROCHE-1547640

PATIENT
  Age: 74 Year
  Sex: Female

DRUGS (7)
  1. CARDIOASPIRIN [Concomitant]
     Active Substance: ASPIRIN
     Dosage: 100 MG GASTRO-RESISTANT TABLETS 60 TABLETS
     Route: 048
  2. CLEXANE [Concomitant]
     Active Substance: ENOXAPARIN SODIUM
     Dosage: 2000 IU AXA 0.2 ML 6 PRE-FILLED SYRINGES
     Route: 065
  3. DEPONIT [Concomitant]
     Active Substance: NITROGLYCERIN
     Dosage: 10 MG/24 H TRANSDERMAL PATCHES  15 PATCHES
     Route: 062
  4. LASIX [Concomitant]
     Active Substance: FUROSEMIDE
     Dosage: 25 MG TABLETS 30 TABLETS
     Route: 048
  5. ROCEFIN [Suspect]
     Active Substance: CEFTRIAXONE SODIUM
     Indication: PRODUCT USED FOR UNKNOWN INDICATION
     Dosage: 1G/3.5ML-1 VIAL OF POWDER+1 VIAL OF SOLVENT 3.5 ML
     Route: 030
     Dates: start: 20150216, end: 20150227
  6. ZITHROMAX [Suspect]
     Active Substance: AZITHROMYCIN DIHYDRATE
     Indication: PRODUCT USED FOR UNKNOWN INDICATION
     Route: 048
     Dates: start: 20150224, end: 20150227
  7. NORVASC [Concomitant]
     Active Substance: AMLODIPINE BESYLATE
     Dosage: 5 MG TABLETS 28 TABLETS
     Route: 048

REACTIONS (2)
  - Chronic obstructive pulmonary disease [Recovering/Resolving]
  - Drug ineffective [Unknown]

NARRATIVE: CASE EVENT DATE: 20150227
